FAERS Safety Report 5006556-2 (Version None)
Quarter: 2006Q2

REPORT INFORMATION
  Report Type: 
  Country: None (occurrence: None)
  Receive Date: 20060516
  Receipt Date: 20060508
  Transmission Date: 20061013
  Serious: Yes (Hospitalization)
  Sender: FDA-Public Use
  Company Number: EM2006-0268

PATIENT
  Age: 62 Year

DRUGS (2)
  1. PROLEUKIN [Suspect]
     Indication: RENAL CELL CARCINOMA STAGE UNSPECIFIED
     Dosage: 36 MIU, SUBCUTAN.
     Route: 058
     Dates: end: 20060412
  2. INTERFERON ALFA-2A                  (INTERFERON ALFA) [Suspect]
     Indication: RENAL CELL CARCINOMA STAGE UNSPECIFIED
     Dosage: 9 MIU,
     Dates: end: 20060410

REACTIONS (2)
  - ASTHENIA [None]
  - DEHYDRATION [None]
